FAERS Safety Report 20007397 (Version 1)
Quarter: 2021Q4

REPORT INFORMATION
  Report Type: Report from Study
  Country: US (occurrence: US)
  Receive Date: 20211028
  Receipt Date: 20211028
  Transmission Date: 20220303
  Serious: Yes (Hospitalization, Disabling, Other)
  Sender: FDA-Public Use
  Company Number: US-SANOFI-00210781

PATIENT
  Age: 66 Year
  Sex: Male

DRUGS (2)
  1. DUPILUMAB [Suspect]
     Active Substance: DUPILUMAB
     Indication: Dermatitis atopic
     Dosage: 600 MG, 1X
     Route: 058
     Dates: start: 20181107, end: 20181107
  2. DUPILUMAB [Suspect]
     Active Substance: DUPILUMAB
     Dosage: 300 MG, QOW
     Route: 058

REACTIONS (8)
  - Aortic aneurysm [Recovering/Resolving]
  - Wheelchair user [Not Recovered/Not Resolved]
  - Renal failure [Not Recovered/Not Resolved]
  - Leg amputation [Unknown]
  - Weight increased [Not Recovered/Not Resolved]
  - Weight decreased [Recovering/Resolving]
  - Weight increased [Not Recovered/Not Resolved]
  - Exercise lack of [Not Recovered/Not Resolved]

NARRATIVE: CASE EVENT DATE: 20200101
